FAERS Safety Report 6643590-0 (Version None)
Quarter: 2010Q1

REPORT INFORMATION
  Report Type: 
  Country: None (occurrence: None)
  Receive Date: 20100320
  Receipt Date: 20100309
  Transmission Date: 20100710
  Serious: Yes (Other)
  Sender: FDA-Public Use
  Company Number: US-JNJFOC-20100303000

PATIENT
  Sex: Female
  Weight: 52.62 kg

DRUGS (2)
  1. ORTHO TRI-CYCLEN LO [Suspect]
     Indication: CONTRACEPTION
     Route: 048
  2. THYROID PREPARATION [Concomitant]
     Indication: THYROID DISORDER
     Route: 048

REACTIONS (4)
  - CHEST PAIN [None]
  - GASTROENTERITIS SALMONELLA [None]
  - IMMUNE SYSTEM DISORDER [None]
  - LUNG NEOPLASM [None]
